FAERS Safety Report 5515292-5 (Version None)
Quarter: 2007Q4

REPORT INFORMATION
  Report Type: 
  Country: None (occurrence: None)
  Receive Date: 20071113
  Receipt Date: 20071026
  Transmission Date: 20080405
  Serious: Yes (Hospitalization)
  Sender: FDA-Public Use
  Company Number: BE-BOEHRINGER INGELHEIM PHARMACEUTICALS, INC.-2007-BP-18170YA

PATIENT
  Sex: Male
  Weight: 83 kg

DRUGS (6)
  1. TAMSULOSIN OCR [Suspect]
     Indication: BENIGN PROSTATIC HYPERPLASIA
     Route: 048
     Dates: start: 20070404, end: 20070713
  2. SOLIFENACIN (TAMSULOSIN REFERENCE) [Suspect]
     Indication: BENIGN PROSTATIC HYPERPLASIA
     Route: 048
     Dates: start: 20070404, end: 20070713
  3. BARNIDIPINE [Concomitant]
     Indication: HYPERTENSION
     Route: 065
     Dates: start: 20070304
  4. BISOPROLOL FUMARATE [Concomitant]
     Indication: HYPERTENSION
     Dates: end: 20020101
  5. QUINAPRIL HCL [Concomitant]
     Indication: HYPERTENSION
     Dates: start: 20020101
  6. FENOFIBRAT [Concomitant]
     Indication: HYPERCHOLESTEROLAEMIA
     Dates: start: 20070418

REACTIONS (1)
  - URINARY RETENTION [None]
